FAERS Safety Report 11594311 (Version 1)
Quarter: 2015Q4

REPORT INFORMATION
  Report Type: Spontaneous
  Country: US (occurrence: US)
  Receive Date: 20151005
  Receipt Date: 20151005
  Transmission Date: 20160304
  Serious: No
  Sender: FDA-Public Use
  Company Number: US-BAYER-2015-050867

PATIENT
  Age: 74 Year
  Sex: Male
  Weight: 90.25 kg

DRUGS (1)
  1. MACROGOL 3350 [Suspect]
     Active Substance: POLYETHYLENE GLYCOL 3350
     Indication: CONSTIPATION
     Dosage: UNK
     Route: 048
     Dates: start: 2005

REACTIONS (3)
  - Product odour abnormal [Unknown]
  - Product taste abnormal [Unknown]
  - Oral discomfort [Recovered/Resolved]

NARRATIVE: CASE EVENT DATE: 20150104
